FAERS Safety Report 23658148 (Version 2)
Quarter: 2024Q2

REPORT INFORMATION
  Report Type: Spontaneous
  Country: BE (occurrence: BE)
  Receive Date: 20240321
  Receipt Date: 20240405
  Transmission Date: 20240716
  Serious: Yes (Other)
  Sender: FDA-Public Use
  Company Number: BE-002147023-NVSC2024BE060628

PATIENT
  Age: 45 Year
  Sex: Female

DRUGS (1)
  1. TAFINLAR [Suspect]
     Active Substance: DABRAFENIB MESYLATE
     Indication: Erdheim-Chester disease
     Dosage: 15 MG, QD
     Route: 065

REACTIONS (4)
  - Erdheim-Chester disease [Unknown]
  - Disease progression [Unknown]
  - Uveitis [Unknown]
  - Product use in unapproved indication [Unknown]
